FAERS Safety Report 8302442-0 (Version None)
Quarter: 2012Q2

REPORT INFORMATION
  Report Type: 
  Country: None (occurrence: None)
  Receive Date: 20120420
  Receipt Date: 20120404
  Transmission Date: 20120825
  Serious: Yes (Other)
  Sender: FDA-Public Use
  Company Number: CHPA2012US008932

PATIENT
  Age: 77 Year
  Sex: Female

DRUGS (3)
  1. PSYLLIUM [Concomitant]
     Dosage: UNK, UNK
  2. BENEFIBER PLUS HEART HEALTH [Suspect]
     Indication: NUTRITIONAL SUPPORT
     Dosage: 2 TSP  TO 1 TABLESPOON, OFF AND ON
     Route: 048
     Dates: start: 20110401, end: 20111001
  3. BENEFIBER W/ WHEAT DEXTRIN [Suspect]
     Dosage: UNK, UNK
     Route: 065

REACTIONS (3)
  - GLUCOSE TOLERANCE IMPAIRED [None]
  - INCORRECT DOSE ADMINISTERED [None]
  - BLOOD CHOLESTEROL INCREASED [None]
